FAERS Safety Report 6981840-1 (Version None)
Quarter: 2010Q3

REPORT INFORMATION
  Report Type: 
  Country: None (occurrence: None)
  Receive Date: 20100914
  Receipt Date: 20091118
  Transmission Date: 20110219
  Serious: No
  Sender: FDA-Public Use
  Company Number: US-PFIZER INC-2009267705

PATIENT
  Age: 57 Year
  Sex: Male

DRUGS (1)
  1. LYRICA [Suspect]
     Dosage: 150 MG, 3X/DAY

REACTIONS (2)
  - CREATININE RENAL CLEARANCE DECREASED [None]
  - WHITE BLOOD CELL COUNT INCREASED [None]
